FAERS Safety Report 8492595-6 (Version None)
Quarter: 2012Q3

REPORT INFORMATION
  Report Type: 
  Country: None (occurrence: None)
  Receive Date: 20120706
  Receipt Date: 20120625
  Transmission Date: 20120928
  Serious: Yes (Other)
  Sender: FDA-Public Use
  Company Number: US-ELI_LILLY_AND_COMPANY-US201206008057

PATIENT
  Sex: Male
  Weight: 99.773 kg

DRUGS (13)
  1. SSRI [Concomitant]
  2. GABAPENTIN [Concomitant]
     Dosage: 600 MG, TID
  3. LYRICA [Concomitant]
     Dosage: 75 MG, BID
  4. LYRICA [Concomitant]
     Dosage: 425 MG, QD
  5. GABAPENTIN [Concomitant]
     Dosage: 100 MG, TID
  6. GABAPENTIN [Concomitant]
     Dosage: 300 MG, TID
  7. LYRICA [Concomitant]
     Indication: FIBROMYALGIA
     Dosage: 100 MG, TID
     Dates: start: 20101101
  8. LYRICA [Concomitant]
     Dosage: 75 MG, QD
     Dates: start: 20110201
  9. LYRICA [Concomitant]
     Dosage: 75 MG, TID
  10. CYMBALTA [Suspect]
     Indication: FIBROMYALGIA
  11. CLONAZEPAM [Concomitant]
     Indication: ANXIETY
     Dosage: 1 MG, TID
  12. GABAPENTIN [Concomitant]
     Dosage: 400 MG, TID
  13. MIRTAZAPINE [Concomitant]
     Indication: DEPRESSION
     Dosage: 30 MG, QD

REACTIONS (16)
  - FOOD INTOLERANCE [None]
  - SOMNOLENCE [None]
  - WEIGHT FLUCTUATION [None]
  - FEELING ABNORMAL [None]
  - DEHYDRATION [None]
  - IRRITABLE BOWEL SYNDROME [None]
  - TREMOR [None]
  - DEPRESSION [None]
  - PAIN [None]
  - MEMORY IMPAIRMENT [None]
  - HYPERSOMNIA [None]
  - FATIGUE [None]
  - DRUG INEFFECTIVE [None]
  - MALAISE [None]
  - BLOOD PRESSURE ABNORMAL [None]
  - FIBROMYALGIA [None]
